FAERS Safety Report 12720151 (Version 4)
Quarter: 2017Q3

REPORT INFORMATION
  Report Type: Spontaneous
  Country: US (occurrence: US)
  Receive Date: 20160907
  Receipt Date: 20170824
  Transmission Date: 20171127
  Serious: No
  Sender: FDA-Public Use
  Company Number: US-PFIZER INC-2016416379

PATIENT
  Age: 55 Year
  Sex: Male
  Weight: 103 kg

DRUGS (24)
  1. BUPIVACAINE HCL [Suspect]
     Active Substance: BUPIVACAINE HYDROCHLORIDE
     Indication: SPINAL ANAESTHESIA
     Dosage: 1.5 ML, SINGLE, (0.75% IN 8.25% DEXTROSE)
     Route: 037
     Dates: start: 20160823
  2. PHENYLEPHRINE [Concomitant]
     Active Substance: PHENYLEPHRINE\PHENYLEPHRINE HYDROCHLORIDE
     Indication: HYPOTENSION
     Dosage: 100 UG, UNK
     Route: 042
     Dates: start: 20160823
  3. PHENYLEPHRINE [Concomitant]
     Active Substance: PHENYLEPHRINE\PHENYLEPHRINE HYDROCHLORIDE
     Dosage: 100 UG, UNK
     Route: 042
     Dates: start: 20160823
  4. PHENYLEPHRINE [Concomitant]
     Active Substance: PHENYLEPHRINE\PHENYLEPHRINE HYDROCHLORIDE
     Dosage: 200 UG, UNK
     Route: 042
     Dates: start: 20160823
  5. PROPOFOL. [Concomitant]
     Active Substance: PROPOFOL
     Indication: ANAESTHESIA PROCEDURE
     Dosage: UNK, (FROM 10:08AM THROUGH 11:27AM, TOTAL OF 78ML 10MG/ML)
     Route: 042
     Dates: start: 20160823
  6. LACTATED RINGERS [Concomitant]
     Active Substance: CALCIUM CHLORIDE\POTASSIUM CHLORIDE\SODIUM CHLORIDE\SODIUM LACTATE
     Dosage: 1 L, UNK
     Route: 042
     Dates: start: 20160823
  7. FENTANYL. [Concomitant]
     Active Substance: FENTANYL
     Dosage: 40 UG, UNK
     Route: 042
     Dates: start: 20160823
  8. EPHEDRINE. [Concomitant]
     Active Substance: EPHEDRINE
     Dosage: 5 MG, UNK
     Route: 042
     Dates: start: 20160823
  9. EPHEDRINE. [Concomitant]
     Active Substance: EPHEDRINE
     Dosage: UNK
  10. TRANEXAMIC ACID. [Concomitant]
     Active Substance: TRANEXAMIC ACID
     Indication: POST PROCEDURAL HAEMORRHAGE
     Dosage: 2 G, UNK
     Route: 042
     Dates: start: 20160823
  11. LACTATED RINGERS [Concomitant]
     Active Substance: CALCIUM CHLORIDE\POTASSIUM CHLORIDE\SODIUM CHLORIDE\SODIUM LACTATE
     Dosage: 1 L, UNK
     Route: 042
     Dates: start: 20160823
  12. CEFAZOLIN [Concomitant]
     Active Substance: CEFAZOLIN
     Indication: ANTIBIOTIC PROPHYLAXIS
     Dosage: 2 G, SINGLE
     Route: 042
     Dates: start: 20160823
  13. FENTANYL. [Concomitant]
     Active Substance: FENTANYL
     Indication: ANAESTHESIA PROCEDURE
     Dosage: 10 UG, UNK
     Route: 037
     Dates: start: 20160823
  14. EPHEDRINE. [Concomitant]
     Active Substance: EPHEDRINE
     Dosage: 10 MG, UNK
     Route: 042
     Dates: start: 20160823
  15. PHENYLEPHRINE [Concomitant]
     Active Substance: PHENYLEPHRINE\PHENYLEPHRINE HYDROCHLORIDE
     Dosage: 100 UG, UNK
     Route: 042
     Dates: start: 20160823
  16. PHENYLEPHRINE [Concomitant]
     Active Substance: PHENYLEPHRINE\PHENYLEPHRINE HYDROCHLORIDE
     Dosage: 100 UG, UNK
     Route: 042
     Dates: start: 20160823
  17. MIDAZOLAM [Concomitant]
     Active Substance: MIDAZOLAM HYDROCHLORIDE
     Dosage: 1 MG, UNK
     Route: 042
     Dates: start: 20160823
  18. FENTANYL. [Concomitant]
     Active Substance: FENTANYL
     Dosage: 25 UG, UNK
     Route: 042
     Dates: start: 20160823
  19. EPHEDRINE. [Concomitant]
     Active Substance: EPHEDRINE
     Dosage: 10 MG, UNK
     Route: 042
     Dates: start: 20160823
  20. ONDANSETRON [Concomitant]
     Active Substance: ONDANSETRON
     Indication: PROPHYLAXIS OF NAUSEA AND VOMITING
     Dosage: 4 MG, UNK
     Route: 042
     Dates: start: 20160823
  21. MIDAZOLAM [Concomitant]
     Active Substance: MIDAZOLAM HYDROCHLORIDE
     Indication: ANXIETY
     Dosage: 1 MG, UNK
     Route: 042
     Dates: start: 20160823
  22. EPHEDRINE. [Concomitant]
     Active Substance: EPHEDRINE
     Indication: HYPOTENSION
     Dosage: 5 MG, UNK
     Route: 042
     Dates: start: 20160823
  23. GLYCOPYRROLATE. [Concomitant]
     Active Substance: GLYCOPYRROLATE
     Indication: ANAESTHESIA REVERSAL
     Dosage: 0.2 MG, UNK
     Route: 042
     Dates: start: 20160823
  24. PHENYLEPHRINE [Concomitant]
     Active Substance: PHENYLEPHRINE\PHENYLEPHRINE HYDROCHLORIDE
     Dosage: 200 UG, UNK
     Route: 042
     Dates: start: 20160823

REACTIONS (2)
  - Muscular weakness [Unknown]
  - Drug ineffective [Unknown]

NARRATIVE: CASE EVENT DATE: 20160823
